FAERS Safety Report 6932990-7 (Version None)
Quarter: 2010Q3

REPORT INFORMATION
  Report Type: 
  Country: None (occurrence: None)
  Receive Date: 20100818
  Receipt Date: 20100818
  Transmission Date: 20110219
  Serious: No
  Sender: FDA-Public Use
  Company Number: None

PATIENT
  Age: 83 Year
  Sex: Male

DRUGS (2)
  1. ENALAPRIL MALEATE [Suspect]
     Dates: start: 20060401, end: 20071101
  2. SIMVASTATIN [Suspect]
     Dates: start: 20000601, end: 20070824

REACTIONS (9)
  - ANTINUCLEAR ANTIBODY POSITIVE [None]
  - BLOOD IMMUNOGLOBULIN G INCREASED [None]
  - CHOLANGIOLITIS [None]
  - CHOLESTASIS [None]
  - FIBROSIS [None]
  - JAUNDICE [None]
  - LIP AND/OR ORAL CAVITY CANCER [None]
  - LIVER DISORDER [None]
  - NEOPLASM RECURRENCE [None]
